FAERS Safety Report 7128646-0 (Version None)
Quarter: 2010Q4

REPORT INFORMATION
  Report Type: 
  Country: None (occurrence: None)
  Receive Date: 20101130
  Receipt Date: 20101123
  Transmission Date: 20110411
  Serious: No
  Sender: FDA-Public Use
  Company Number: US-CEPHALON-US024199

PATIENT
  Sex: Female

DRUGS (7)
  1. FENTORA [Suspect]
     Indication: CROHN'S DISEASE
     Route: 002
  2. FENTORA [Suspect]
     Indication: ARTHRALGIA
  3. ACTIQ [Concomitant]
     Indication: CROHN'S DISEASE
     Dosage: 3-5 DAILY
     Route: 002
  4. ACTIQ [Concomitant]
     Indication: ARTHRALGIA
  5. ACTIQ [Concomitant]
     Indication: ABDOMINAL PAIN
  6. FENTANYL [Concomitant]
     Indication: CROHN'S DISEASE
     Dosage: 100 UG PER HOUR
     Route: 062
  7. FENTANYL [Concomitant]
     Indication: ARTHRALGIA

REACTIONS (3)
  - CIRCUMSTANCE OR INFORMATION CAPABLE OF LEADING TO MEDICATION ERROR [None]
  - DRUG PRESCRIBING ERROR [None]
  - INCORRECT DOSE ADMINISTERED [None]
